FAERS Safety Report 22021884 (Version 1)
Quarter: 2023Q1

REPORT INFORMATION
  Report Type: Spontaneous
  Country: US (occurrence: None)
  Receive Date: 20230220
  Receipt Date: 20230220
  Transmission Date: 20230418
  Serious: Yes (Death)
  Sender: FDA-Public Use
  Company Number: None

PATIENT
  Age: 96 Year
  Sex: Female

DRUGS (1)
  1. ARANESP [Suspect]
     Active Substance: DARBEPOETIN ALFA
     Indication: Myelodysplastic syndrome
     Dosage: 500MCG EVERY 21 DAYS SUBCUTANEOUSLY?
     Route: 058
     Dates: start: 202101, end: 20230216

REACTIONS (1)
  - Death [None]

NARRATIVE: CASE EVENT DATE: 20230216
